FAERS Safety Report 20961617 (Version 2)
Quarter: 2022Q4

REPORT INFORMATION
  Report Type: Spontaneous
  Country: FR (occurrence: FR)
  Receive Date: 20220615
  Receipt Date: 20221229
  Transmission Date: 20230113
  Serious: Yes (Congenital Anomaly, Other)
  Sender: FDA-Public Use
  Company Number: FR-SA-2020SA177727

PATIENT
  Age: 39 Week
  Sex: Male

DRUGS (3)
  1. TEGRETOL [Suspect]
     Active Substance: CARBAMAZEPINE
     Indication: Foetal exposure during pregnancy
     Dosage: MATERNAL  EXPOSURE DURING  PREGNANCY AT AN UNKNOWN DOSE
     Route: 064
  2. VALPROATE SODIUM [Suspect]
     Active Substance: VALPROATE SODIUM
     Indication: Foetal exposure during pregnancy
     Dosage: MATERNAL  EXPOSURE DURING  PREGNANCY FROM 13 MAR 1988 TO 16 DEC 1988 AT A UNKNOWN DOSE
     Route: 064
  3. VALPROATE SODIUM [Suspect]
     Active Substance: VALPROATE SODIUM
     Indication: Foetal exposure during pregnancy
     Dosage: MATERNAL  EXPOSURE DURING  PREGNANCY AT 1000 MG, QD
     Route: 064

REACTIONS (26)
  - Angina pectoris [Unknown]
  - Facial bones fracture [Unknown]
  - Growth failure [Unknown]
  - Hypospadias [Unknown]
  - Joint hyperextension [Unknown]
  - Rhinitis [Unknown]
  - Behaviour disorder [Unknown]
  - Psychomotor skills impaired [Unknown]
  - Fine motor skill dysfunction [Unknown]
  - Meniscus injury [Unknown]
  - Cough [Unknown]
  - Nasopharyngitis [Unknown]
  - Dysgraphia [Unknown]
  - Rhinorrhoea [Unknown]
  - Scoliosis [Unknown]
  - Disturbance in attention [Unknown]
  - Ear, nose and throat disorder [Unknown]
  - Knee deformity [Unknown]
  - Foetal exposure during pregnancy [Unknown]
  - Lordosis [Unknown]
  - Ligament sprain [Unknown]
  - Antisocial behaviour [Unknown]
  - Pharyngeal disorder [Unknown]
  - Injury [Unknown]
  - Dysmorphism [Unknown]
  - Disturbance in attention [Unknown]

NARRATIVE: CASE EVENT DATE: 19881216
